FAERS Safety Report 4721485-7 (Version None)
Quarter: 2005Q3

REPORT INFORMATION
  Report Type: 
  Country: None (occurrence: None)
  Receive Date: 20050721
  Receipt Date: 20041007
  Transmission Date: 20060218
  Serious: No
  Sender: FDA-Public Use
  Company Number: US-BRISTOL-MYERS SQUIBB COMPANY-12725255

PATIENT
  Age: 28 Year
  Sex: Male
  Weight: 70 kg

DRUGS (3)
  1. COUMADIN [Suspect]
     Indication: VENA CAVA FILTER INSERTION
     Dosage: FEB-2001: 3-5MG QD AND AFTER 8 MONTHS STOPPED.
     Route: 048
     Dates: start: 20040301
  2. CELEXA [Concomitant]
  3. PREVACID [Concomitant]

REACTIONS (2)
  - DRUG INEFFECTIVE [None]
  - INTERNATIONAL NORMALISED RATIO DECREASED [None]
